FAERS Safety Report 9853918 (Version 3)
Quarter: 2014Q1

REPORT INFORMATION
  Report Type: Spontaneous
  Country: US (occurrence: US)
  Receive Date: 20140129
  Receipt Date: 20140224
  Transmission Date: 20141002
  Serious: Yes (Other)
  Sender: FDA-Public Use
  Company Number: ALCN2014US000698

PATIENT
  Age: 74 Year
  Sex: Male

DRUGS (1)
  1. TRIESENCE [Suspect]
     Indication: EYE INFLAMMATION
     Dosage: UNK
     Route: 031
     Dates: start: 20140113, end: 20140113

REACTIONS (1)
  - Medication residue present [Recovered/Resolved]
